FAERS Safety Report 4960835-3 (Version None)
Quarter: 2006Q2

REPORT INFORMATION
  Report Type: 
  Country: None (occurrence: None)
  Receive Date: 20060403
  Receipt Date: 20050217
  Transmission Date: 20061013
  Serious: Yes (Hospitalization)
  Sender: FDA-Public Use
  Company Number: AU-ROCHE-395567

PATIENT
  Age: 81 Year
  Sex: Male
  Weight: 71.9 kg

DRUGS (7)
  1. INTERFERON ALFA-2A [Suspect]
     Indication: METASTATIC RENAL CELL CARCINOMA
     Route: 058
     Dates: start: 20050125, end: 20050211
  2. BLINDED BEVACIZUMAB [Suspect]
     Indication: METASTATIC RENAL CELL CARCINOMA
     Route: 042
     Dates: start: 20041222
  3. PROCHLORPERAZINE [Concomitant]
     Dates: start: 20050208, end: 20050211
  4. ZOLOFT [Concomitant]
     Dates: start: 20050208
  5. ASPIRIN [Concomitant]
     Dates: start: 20040914
  6. MAXOLON [Concomitant]
     Dates: start: 20050212
  7. TEMAZEPAM [Concomitant]
     Dates: start: 20050121

REACTIONS (1)
  - HYPONATRAEMIA [None]
